FAERS Safety Report 8620068 (Version 2)
Quarter: 2012Q4

REPORT INFORMATION
  Report Type: 
  Country: US (occurrence: US)
  Receive Date: 20120618
  Receipt Date: 20120828
  Transmission Date: 20130627
  Serious: Yes (Hospitalization)
  Sender: FDA-Public Use
  Company Number: US-ASTRAZENECA-2012SE38724

PATIENT
  Age: 60 Year
  Sex: Female
  Weight: 74.8 kg

DRUGS (17)
  1. SYMBICORT PMDI [Suspect]
     Indication: CHRONIC OBSTRUCTIVE PULMONARY DISEASE
     Dosage: 160/4.5 MCG TWO TIMES DAILY (IN THE MORNING AND AT BEDTIME)
     Route: 055
     Dates: start: 2010
  2. ASPIRIN [Concomitant]
     Route: 048
  3. PROTONIX [Concomitant]
     Indication: HIATUS HERNIA
  4. PROTONIX [Concomitant]
     Indication: GASTRIC DISORDER
  5. LYRICA [Concomitant]
     Indication: FIBROMYALGIA
  6. PREMARIN [Concomitant]
     Indication: HOT FLUSH
  7. ZANAX [Concomitant]
     Indication: TREMOR
  8. ZANAX [Concomitant]
     Indication: NERVOUSNESS
  9. ZANAX [Concomitant]
     Indication: RESTLESSNESS
  10. PERPHENAZINE/AMITRIPTYLINE [Concomitant]
     Indication: DEPRESSION
     Dosage: 4/25 MG
  11. PERPHENAZINE/AMITRIPTYLINE [Concomitant]
     Indication: ANXIETY
     Dosage: 4/25 MG
  12. LORTAB [Concomitant]
     Indication: PAIN
     Dosage: 10/500 MG
  13. DEMEROL [Concomitant]
     Indication: PAIN
  14. PHENERGAN [Concomitant]
     Indication: PAIN
  15. SPIRIVA [Concomitant]
     Dosage: DAILY
  16. DULERA [Concomitant]
     Dosage: 200 MCG/ 5 MG
  17. PREDNISONE [Concomitant]
     Indication: PSORIASIS
     Dosage: TID

REACTIONS (5)
  - Pneumonia [Unknown]
  - Nail disorder [Unknown]
  - Psoriasis [Unknown]
  - Dyspnoea [Unknown]
  - Drug dose omission [Unknown]
